FAERS Safety Report 4606188-1 (Version None)
Quarter: 2005Q1

REPORT INFORMATION
  Report Type: 
  Country: None (occurrence: None)
  Receive Date: 20050214
  Receipt Date: 20041111
  Transmission Date: 20050727
  Serious: No
  Sender: FDA-Public Use
  Company Number: USA041183835

PATIENT
  Age: 74 Year
  Sex: Male

DRUGS (25)
  1. CIALIS [Suspect]
     Indication: ERECTILE DYSFUNCTION
  2. LIPITOR [Concomitant]
  3. ACETYLSALICYLIC ACID ^BAYER^ (ACETYLSALICYLIC ACID) [Concomitant]
  4. METHOCARBAMOL [Concomitant]
  5. AVANDIA [Concomitant]
  6. FUROSEMIDE [Concomitant]
  7. NEXIUM [Concomitant]
  8. ALLEGRA [Concomitant]
  9. COREG [Concomitant]
  10. LANOXICAPS (DIGOXIN STREULI) [Concomitant]
  11. PROSCAR [Concomitant]
  12. K-DUR 10 [Concomitant]
  13. TYLENOL (CAPLET) [Concomitant]
  14. ALEVE [Concomitant]
  15. AMTRIPLPERPHEN [Concomitant]
  16. HYDROCODONE BITARTRATE [Concomitant]
  17. DURAGESIC (FENTANYL) [Concomitant]
  18. VITAMIN E [Concomitant]
  19. GARLIC [Concomitant]
  20. MULTI-VITAMIN [Concomitant]
  21. VITAMIN C [Concomitant]
  22. CALCIUM GLUCONATE [Concomitant]
  23. VITAMIN D [Concomitant]
  24. VITAMIN B-12 [Concomitant]
  25. FISH OIL [Concomitant]

REACTIONS (1)
  - DRUG INEFFECTIVE [None]
